FAERS Safety Report 8250109-X (Version None)
Quarter: 2012Q1

REPORT INFORMATION
  Report Type: 
  Country: None (occurrence: None)
  Receive Date: 20120319
  Receipt Date: 20090430
  Transmission Date: 20120608
  Serious: Yes (Other)
  Sender: FDA-Public Use
  Company Number: PHEH2009US04304

PATIENT
  Age: 77 Year
  Sex: Female
  Weight: 85.7 kg

DRUGS (1)
  1. TEKTURNA HCT [Suspect]
     Indication: SECONDARY HYPERTENSION
     Dosage: 150/12.5MG DAILY, ORAL
     Route: 048
     Dates: start: 20080829, end: 20090421

REACTIONS (4)
  - HYPERTENSION [None]
  - ASTHENIA [None]
  - FATIGUE [None]
  - BLOOD SODIUM DECREASED [None]
